FAERS Safety Report 6366857-2 (Version None)
Quarter: 2009Q3

REPORT INFORMATION
  Report Type: 
  Country: None (occurrence: None)
  Receive Date: 20090921
  Receipt Date: 20090907
  Transmission Date: 20100115
  Serious: Yes (Disabling, Other)
  Sender: FDA-Public Use
  Company Number: SE-MYLANLABS-2009S1015771

PATIENT
  Age: 40 Year
  Sex: Female

DRUGS (4)
  1. CIPROFLAXACIN [Suspect]
     Dates: start: 20090824, end: 20090902
  2. BRICANYL [Concomitant]
  3. PULMICORT-100 [Concomitant]
  4. MIRENA [Concomitant]

REACTIONS (3)
  - ABDOMINAL PAIN [None]
  - PLANTAR FASCIITIS [None]
  - RASH [None]
